FAERS Safety Report 8585207-4 (Version None)
Quarter: 2012Q3

REPORT INFORMATION
  Report Type: 
  Country: None (occurrence: None)
  Receive Date: 20120810
  Receipt Date: 20120807
  Transmission Date: 20120928
  Serious: Yes (Other)
  Sender: FDA-Public Use
  Company Number: PHEH2012US012912

PATIENT
  Sex: Male
  Weight: 89.6 kg

DRUGS (2)
  1. AFINITOR [Suspect]
     Indication: NEUROENDOCRINE TUMOUR
     Dosage: 10 MG, QD
     Route: 048
     Dates: start: 20120425, end: 20120510
  2. AFINITOR [Suspect]
     Dosage: 5 MG, QD
     Route: 048

REACTIONS (9)
  - TONGUE DISORDER [None]
  - GLOSSODYNIA [None]
  - MEMORY IMPAIRMENT [None]
  - GOUT [None]
  - RASH [None]
  - BRADYPHRENIA [None]
  - PAIN [None]
  - ARTHRITIS [None]
  - MUCOSAL INFLAMMATION [None]
